FAERS Safety Report 10233378 (Version 1)
Quarter: 2014Q2

REPORT INFORMATION
  Report Type: Spontaneous
  Country: GB (occurrence: GB)
  Receive Date: 20140612
  Receipt Date: 20140612
  Transmission Date: 20141212
  Serious: Yes (Other)
  Sender: FDA-Public Use
  Company Number: GB-PFIZER INC-2014158332

PATIENT
  Age: 39 Year
  Sex: Female
  Weight: 57.15 kg

DRUGS (3)
  1. CHAMPIX [Suspect]
     Indication: SMOKING CESSATION THERAPY
     Dosage: 1 MG, 2X/DAY
     Route: 048
     Dates: start: 20140501, end: 2014
  2. BECLOMETASONE DIPROPIONATE [Concomitant]
     Dosage: UNK
  3. DESOGESTREL [Concomitant]
     Dosage: UNK

REACTIONS (6)
  - Psychotic disorder [Recovered/Resolved with Sequelae]
  - Anxiety [Not Recovered/Not Resolved]
  - Aggression [Recovered/Resolved with Sequelae]
  - Depression [Not Recovered/Not Resolved]
  - Memory impairment [Recovered/Resolved with Sequelae]
  - Alcohol interaction [Unknown]
